FAERS Safety Report 9539123 (Version 1)
Quarter: 2013Q3

REPORT INFORMATION
  Report Type: Report from Study
  Country: KR (occurrence: KR)
  Receive Date: 20130920
  Receipt Date: 20130920
  Transmission Date: 20140515
  Serious: Yes (Death)
  Sender: FDA-Public Use
  Company Number: KR-AMGEN-KORCT2013066108

PATIENT
  Age: 61 Year
  Sex: Male

DRUGS (5)
  1. DARBEPOETIN ALFA [Suspect]
     Indication: ANAEMIA
     Dosage: 225 MUG, UNK
     Route: 058
     Dates: start: 20130508
  2. CIMETROPIUM BROMIDE [Concomitant]
     Dosage: 150 MG, UNK
     Route: 048
     Dates: start: 20130219, end: 20130511
  3. FERROUS SULFATE [Concomitant]
     Dosage: 256 MG,2T,UNK
     Route: 048
     Dates: start: 20130416, end: 20130511
  4. ITOPRIDE HYDROCHLORIDE [Concomitant]
     Dosage: 50 MG, UNK
     Route: 048
     Dates: start: 20130508, end: 20130511
  5. ACETAMINOPHEN W/CODEINE W/IBUPROFEN [Concomitant]
     Dosage: UNK
     Route: 048
     Dates: start: 20130305, end: 20130511

REACTIONS (1)
  - Mental impairment [Fatal]
